FAERS Safety Report 18986262 (Version 1)
Quarter: 2021Q1

REPORT INFORMATION
  Report Type: Spontaneous
  Country: CN (occurrence: CN)
  Receive Date: 20210309
  Receipt Date: 20210309
  Transmission Date: 20210420
  Serious: Yes (Other)
  Sender: FDA-Public Use
  Company Number: CN-ROCHE-2778925

PATIENT
  Age: 69 Year
  Sex: Female

DRUGS (10)
  1. DEXAMETHASONE. [Concomitant]
     Active Substance: DEXAMETHASONE
     Indication: NON-HODGKIN^S LYMPHOMA
     Dosage: 6 CYCLES OF R?CHOP REGIMEN, FROM DAY 1 TO DAY 5
     Route: 041
     Dates: start: 20200131, end: 20200515
  2. MABTHERA [Suspect]
     Active Substance: RITUXIMAB
     Indication: NON-HODGKIN^S LYMPHOMA
     Dosage: 6 CYCLES OF R?CHOP REGIMEN, ON DAY 0
     Route: 041
     Dates: start: 20200131, end: 20200515
  3. FELODIPINE. [Concomitant]
     Active Substance: FELODIPINE
     Indication: HYPERTENSION
     Dosage: SUSTAINED?RELEASE TABLETS
     Route: 048
  4. MABTHERA [Suspect]
     Active Substance: RITUXIMAB
     Dosage: 2 CYCLES OF CHEMOTHERAPY, ON DAY 0
     Route: 041
     Dates: start: 20201208
  5. CYCLOPHOSPHAMIDE. [Concomitant]
     Active Substance: CYCLOPHOSPHAMIDE
     Indication: NON-HODGKIN^S LYMPHOMA
     Dosage: 6 CYCLES OF R?CHOP REGIMEN, ON DAY 1
     Route: 041
     Dates: start: 20200131
  6. VINDESINE [Concomitant]
     Active Substance: VINDESINE
     Indication: NON-HODGKIN^S LYMPHOMA
     Dosage: 6 CYCLES OF R?CHOP REGIMEN, ON DAY 1
     Route: 041
     Dates: start: 20200131
  7. DEXAMETHASONE. [Concomitant]
     Active Substance: DEXAMETHASONE
     Dosage: 2 CYCLES OF CHEMOTHERAPY, FROM DAY 1 TO DAY 5
     Dates: start: 20201208
  8. EPIRUBICIN [Concomitant]
     Active Substance: EPIRUBICIN
     Indication: NON-HODGKIN^S LYMPHOMA
     Dosage: 6 CYCLES OF R?CHOP REGIMEN, ON DAY 1
     Route: 041
     Dates: start: 20200131
  9. METHOTREXATE. [Concomitant]
     Active Substance: METHOTREXATE
     Indication: NON-HODGKIN^S LYMPHOMA
     Dosage: 2 CYCLES OF CHEMOTHERAPY, ON DAY 1
     Dates: start: 20201208
  10. MABTHERA [Suspect]
     Active Substance: RITUXIMAB
     Indication: DIFFUSE LARGE B-CELL LYMPHOMA STAGE IV
     Dosage: 2 CYCLES OF R REGIMEN, ON DAY 1
     Route: 041
     Dates: start: 20200715, end: 20200811

REACTIONS (6)
  - Loss of consciousness [Recovered/Resolved]
  - Headache [Recovering/Resolving]
  - Eye disorder [Recovering/Resolving]
  - Dizziness [Recovering/Resolving]
  - Vomiting [Unknown]
  - Seizure [Recovered/Resolved]

NARRATIVE: CASE EVENT DATE: 202011
